FAERS Safety Report 24019823 (Version 1)
Quarter: 2024Q2

REPORT INFORMATION
  Report Type: Other
  Country: JP (occurrence: JP)
  Receive Date: 20240627
  Receipt Date: 20240627
  Transmission Date: 20240715
  Serious: Yes (Life-Threatening, Hospitalization)
  Sender: FDA-Public Use
  Company Number: JP-Merck Healthcare KGaA-2024033852

PATIENT
  Age: 60 Year
  Sex: Male

DRUGS (1)
  1. METGLUCO [Suspect]
     Active Substance: METFORMIN HYDROCHLORIDE
     Indication: Suicide attempt
     Dosage: 48000 MG, SINGLE
     Route: 048

REACTIONS (3)
  - Suicide attempt [Unknown]
  - Lactic acidosis [Recovering/Resolving]
  - Intentional overdose [Unknown]
